FAERS Safety Report 9728245 (Version 1)
Quarter: 2013Q4

REPORT INFORMATION
  Report Type: Spontaneous
  Country: US (occurrence: None)
  Receive Date: 20131203
  Receipt Date: 20131203
  Transmission Date: 20140711
  Serious: Yes (Death, Hospitalization)
  Sender: FDA-Public Use
  Company Number: None

PATIENT
  Age: 61 Year
  Sex: Female
  Weight: 67.13 kg

DRUGS (1)
  1. METHOTREXATE [Suspect]
     Indication: RHEUMATOID ARTHRITIS
     Dosage: 2.5 MG, TAKE 7 PILLS ON SATURDAY. PO?ONCE WEEK, ON SATURDAY
     Route: 048

REACTIONS (9)
  - Nausea [None]
  - Decreased appetite [None]
  - Diarrhoea [None]
  - Dry skin [None]
  - Contusion [None]
  - Dyspnoea [None]
  - Oral fungal infection [None]
  - Speech disorder [None]
  - Abscess [None]
